FAERS Safety Report 25962145 (Version 1)
Quarter: 2025Q4

REPORT INFORMATION
  Report Type: Spontaneous
  Country: JP (occurrence: JP)
  Receive Date: 20251027
  Receipt Date: 20251027
  Transmission Date: 20260119
  Serious: Yes (Other)
  Sender: MYLAN
  Company Number: JP-MYLANLABS-2025M1090294

PATIENT
  Age: 69 Year
  Sex: Female

DRUGS (3)
  1. TACROLIMUS [Suspect]
     Active Substance: TACROLIMUS
     Indication: Rheumatoid arthritis
  2. PREDNISOLONE [Suspect]
     Active Substance: PREDNISOLONE
     Indication: Rheumatoid arthritis
     Dosage: 5 MILLIGRAM, QD
  3. PREDNISOLONE [Suspect]
     Active Substance: PREDNISOLONE
     Dosage: DOSAGES DECREASED BY 2.5MG EACH 2 MONTHS AND TERMINATED 4 MONTHS AFTER INITIATION

REACTIONS (3)
  - Sarcoidosis [Recovering/Resolving]
  - Drug ineffective [Unknown]
  - Off label use [Unknown]
